FAERS Safety Report 23606519 (Version 1)
Quarter: 2024Q1

REPORT INFORMATION
  Report Type: Spontaneous
  Country: PL (occurrence: PL)
  Receive Date: 20240307
  Receipt Date: 20240307
  Transmission Date: 20240410
  Serious: Yes (Other)
  Sender: FDA-Public Use
  Company Number: PL-ZAMBON SWITZERLAND LTD.-2024-ZAM-PL000014

PATIENT

DRUGS (1)
  1. FOSFOMYCIN TROMETHAMINE [Suspect]
     Active Substance: FOSFOMYCIN TROMETHAMINE
     Indication: Product used for unknown indication
     Dosage: UNK
     Route: 048

REACTIONS (2)
  - Arrhythmia [Recovered/Resolved]
  - Chest discomfort [Recovered/Resolved]
